FAERS Safety Report 5177494-X (Version None)
Quarter: 2006Q4

REPORT INFORMATION
  Report Type: 
  Country: None (occurrence: None)
  Receive Date: 20061218
  Receipt Date: 20061108
  Transmission Date: 20070319
  Serious: Yes (Life-Threatening, Hospitalization)
  Sender: FDA-Public Use
  Company Number: BE-ELI_LILLY_AND_COMPANY-BE200611001562

PATIENT
  Age: 81 Year
  Sex: Female

DRUGS (7)
  1. FORTEO [Suspect]
     Indication: OSTEOPOROSIS
     Dosage: 20 UG, DAILY (1/D)
     Route: 058
     Dates: start: 20060606
  2. PARIET                                  /JPN/ [Concomitant]
     Indication: OESOPHAGITIS
     Dosage: 10 MG, DAILY (1/D)
  3. ISOTEN [Concomitant]
     Indication: HYPERTENSION
     Dosage: 2.5 MG, DAILY (1/D)
  4. PLAVIX                                  /UNK/ [Concomitant]
     Indication: HYPERTENSION
     Dosage: 75 MG, DAILY (1/D)
  5. ISILUNG [Concomitant]
     Indication: CHRONIC OBSTRUCTIVE PULMONARY DISEASE
     Dosage: 200 MG, DAILY (1/D)
  6. LEDERTREXATE /AUS/ [Concomitant]
     Indication: POLYARTHRITIS
     Dosage: 5 MG, DAILY (1/D)
  7. CACIT D3 [Concomitant]
     Indication: OSTEOPOROSIS

REACTIONS (1)
  - CEREBROVASCULAR ACCIDENT [None]
